FAERS Safety Report 18077872 (Version 1)
Quarter: 2020Q3

REPORT INFORMATION
  Report Type: Report from Study
  Country: US (occurrence: US)
  Receive Date: 20200727
  Receipt Date: 20200727
  Transmission Date: 20201103
  Serious: No
  Sender: FDA-Public Use
  Company Number: NVSC2020US210034

PATIENT
  Sex: Male

DRUGS (1)
  1. GILENYA [Suspect]
     Active Substance: FINGOLIMOD HYDROCHLORIDE
     Indication: MULTIPLE SCLEROSIS
     Dosage: 0.5 MG, QD (5 TIMES A WEEK INSTEAD OF 7 TIMES A WEEK)
     Route: 048
     Dates: start: 20200428

REACTIONS (1)
  - Blood count abnormal [Not Recovered/Not Resolved]
